FAERS Safety Report 10388750 (Version 1)
Quarter: 2014Q1

REPORT INFORMATION
  Report Type: Spontaneous
  Country: US (occurrence: None)
  Receive Date: 20140306
  Receipt Date: 20140306
  Transmission Date: 20141002
  Serious: Yes (Hospitalization)
  Sender: FDA-Public Use
  Company Number: 163-21880-13123858

PATIENT
  Age: 82 Year
  Sex: Female

DRUGS (16)
  1. REVLIMID (LENALIDOMIDE) (5 MILLIGRAM, CAPSULES) [Suspect]
     Indication: MYELOFIBROSIS
     Dosage: 21 IN 21 D
     Route: 048
     Dates: start: 201306
  2. REVLIMID (LENALIDOMIDE) (5 MILLIGRAM, CAPSULES) [Suspect]
     Indication: MYELOID METAPLASIA
     Dosage: 21 IN 21 D
     Route: 048
     Dates: start: 201306
  3. ASPIRIN (ACETYLSALICYLIC ACID) (CHEWABLE TABLET) [Concomitant]
  4. LISINOPRIL (TABLETS) (LISINOPRIL) [Concomitant]
  5. DIGOXIN (TABLETS) [Concomitant]
  6. GABAPENTIN (CAPSULES) [Concomitant]
  7. PROPAFENONE HCL (TABLETS) [Concomitant]
  8. ATIVAN (LORAZEPAM) (TABLETS) [Concomitant]
  9. CENTRUM (TABLETS) [Concomitant]
  10. LEVOFLOXACIN (TABLETS) [Concomitant]
  11. NEXIUM (ESOMEPRAZOLE) (CAPSULES) [Concomitant]
  12. HYDROCODONE ACETAMINOPHEN (VICODIN) [Concomitant]
  13. KIONEX (SODIUM POLYSTYREE, SULFONATE) (SUSPENSION) [Concomitant]
  14. LIDODERM (LIDOCAINE) (POULTICE OR PATCH) [Concomitant]
  15. SPS (SODIUM POLYSTYRENE SULFONATE) (SUSPENSION) [Concomitant]
  16. PREDNISONE (TABLETS) [Concomitant]

REACTIONS (1)
  - Urinary tract infection [None]
